FAERS Safety Report 6388264-9 (Version None)
Quarter: 2009Q4

REPORT INFORMATION
  Report Type: 
  Country: None (occurrence: None)
  Receive Date: 20091001
  Receipt Date: 20091001
  Transmission Date: 20100525
  Serious: Yes (Other)
  Sender: FDA-Public Use
  Company Number: None

PATIENT
  Age: 65 Year
  Sex: Female
  Weight: 70.3075 kg

DRUGS (2)
  1. DILANTIN [Suspect]
     Indication: BRAIN NEOPLASM
     Dosage: 300 MG DAY 1, 2; 400 DAY 3 DAILY
     Dates: start: 19931110, end: 20090929
  2. DILANTIN [Suspect]
     Indication: GRAND MAL CONVULSION
     Dosage: 300 MG DAY 1, 2; 400 DAY 3 DAILY
     Dates: start: 19931110, end: 20090929

REACTIONS (2)
  - CONVULSION [None]
  - PRODUCT QUALITY ISSUE [None]
